FAERS Safety Report 18534001 (Version 7)
Quarter: 2024Q1

REPORT INFORMATION
  Report Type: Report from Study
  Country: JP (occurrence: JP)
  Receive Date: 20201123
  Receipt Date: 20240104
  Transmission Date: 20240410
  Serious: Yes (Hospitalization, Disabling, Other)
  Sender: FDA-Public Use
  Company Number: JP-JNJFOC-A-CH2018-172706

PATIENT
  Age: 70 Year
  Sex: Female
  Weight: 38 kg

DRUGS (37)
  1. OPSUMIT [Suspect]
     Active Substance: MACITENTAN
     Indication: Pulmonary arterial hypertension
     Dosage: 10 MG, QD
     Route: 048
     Dates: start: 20170518, end: 20170617
  2. OPSUMIT [Suspect]
     Active Substance: MACITENTAN
     Indication: Pulmonary arterial hypertension
     Dosage: 10 MG, QD
     Route: 048
     Dates: start: 20171011, end: 20180525
  3. OPSUMIT [Suspect]
     Active Substance: MACITENTAN
     Dosage: 10 MG, QD
     Route: 048
     Dates: start: 20180804
  4. OPSUMIT [Suspect]
     Active Substance: MACITENTAN
     Dosage: 10 MG, QD
     Route: 048
     Dates: start: 20180407, end: 20180711
  5. UPTRAVI [Suspect]
     Active Substance: SELEXIPAG
     Indication: Pulmonary arterial hypertension
     Dosage: 0.2 MG, QD
     Route: 048
     Dates: start: 20170612, end: 20170628
  6. UPTRAVI [Suspect]
     Active Substance: SELEXIPAG
     Indication: Pulmonary arterial hypertension
     Dosage: 0.2 MG, BID
     Route: 048
     Dates: start: 20190513
  7. UPTRAVI [Suspect]
     Active Substance: SELEXIPAG
     Dosage: 0.4 MG, QD
     Route: 048
     Dates: start: 20190513, end: 20190609
  8. UPTRAVI [Suspect]
     Active Substance: SELEXIPAG
     Dosage: 0.2 MG, QD
     Route: 048
     Dates: start: 20181208
  9. UPTRAVI [Suspect]
     Active Substance: SELEXIPAG
     Route: 048
     Dates: start: 20190518
  10. UPTRAVI [Suspect]
     Active Substance: SELEXIPAG
     Dosage: 0.2 MG, QD
     Route: 048
     Dates: start: 20190610, end: 20211012
  11. BERAPROST SODIUM [Suspect]
     Active Substance: BERAPROST SODIUM
     Indication: Pulmonary arterial hypertension
     Dosage: 20 MCG, TID
     Route: 048
     Dates: start: 20170517
  12. BERAPROST SODIUM [Suspect]
     Active Substance: BERAPROST SODIUM
     Dosage: 20 MCG, TID
     Route: 048
     Dates: start: 20171011, end: 20180108
  13. BERAPROST SODIUM [Suspect]
     Active Substance: BERAPROST SODIUM
     Dosage: 20 MCG, QD
     Route: 048
     Dates: start: 20180407, end: 20181207
  14. ADCIRCA [Suspect]
     Active Substance: TADALAFIL
     Indication: Pulmonary arterial hypertension
     Dosage: 40 MG, QD
     Route: 048
     Dates: start: 20170518, end: 20170615
  15. ADCIRCA [Suspect]
     Active Substance: TADALAFIL
     Indication: Pulmonary arterial hypertension
     Dosage: 20 MG, QD
     Route: 048
     Dates: start: 20171011, end: 20180108
  16. ADCIRCA [Suspect]
     Active Substance: TADALAFIL
     Dosage: 20 MG, QD
     Route: 048
     Dates: start: 20180407, end: 20180711
  17. ASPIRIN [Suspect]
     Active Substance: ASPIRIN
     Indication: Product used for unknown indication
     Route: 048
  18. PRASUGREL HYDROCHLORIDE [Suspect]
     Active Substance: PRASUGREL HYDROCHLORIDE
     Indication: Product used for unknown indication
     Route: 048
  19. TOCOPHERYL NICOTINATE, D-.ALPHA. [Suspect]
     Active Substance: TOCOPHERYL NICOTINATE, D-.ALPHA.
     Indication: Peripheral vascular disorder
     Dosage: 150 MG, TID
     Route: 048
     Dates: start: 20170517
  20. TOCOPHERYL NICOTINATE, D-.ALPHA. [Suspect]
     Active Substance: TOCOPHERYL NICOTINATE, D-.ALPHA.
     Dosage: 100 MG, TID
     Route: 048
     Dates: start: 20180407
  21. TOCOPHERYL NICOTINATE, D-.ALPHA. [Suspect]
     Active Substance: TOCOPHERYL NICOTINATE, D-.ALPHA.
  22. REBAMIPIDE [Concomitant]
     Active Substance: REBAMIPIDE
     Indication: Chronic gastritis
     Dosage: UNK
  23. REBAMIPIDE [Concomitant]
     Active Substance: REBAMIPIDE
     Dosage: 100 MG, BID
     Route: 048
     Dates: start: 20170518, end: 20170526
  24. BERIZYM [ENZYMES NOS] [Concomitant]
     Indication: Chronic gastritis
     Dosage: 1 G, TID
     Route: 048
     Dates: start: 20170517
  25. BERIZYM [ENZYMES NOS] [Concomitant]
     Dosage: 1 G, TID
     Route: 048
     Dates: start: 20171011
  26. BERIZYM [ENZYMES NOS] [Concomitant]
     Dosage: 1 G, TID
     Route: 048
     Dates: start: 20180407
  27. BERIZYM [ENZYMES NOS] [Concomitant]
     Dates: end: 20170628
  28. MAGNESIUM OXIDE [Concomitant]
     Active Substance: MAGNESIUM OXIDE
     Indication: Constipation
     Dosage: 330 MG, TID
     Route: 048
     Dates: start: 20170517, end: 20170630
  29. MAGNESIUM OXIDE [Concomitant]
     Active Substance: MAGNESIUM OXIDE
     Route: 048
     Dates: start: 20170615, end: 20170628
  30. ITOPRIDE [Concomitant]
     Active Substance: ITOPRIDE
     Indication: Chronic gastritis
     Dosage: 50 MG, TID
     Route: 048
     Dates: start: 20170517
  31. ITOPRIDE [Concomitant]
     Active Substance: ITOPRIDE
     Dosage: 50 MG, TID
     Route: 048
     Dates: start: 20180407
  32. LYRICA [Concomitant]
     Active Substance: PREGABALIN
     Indication: Pain
     Dosage: 25 MG, QD
     Dates: end: 20170628
  33. LYRICA [Concomitant]
     Active Substance: PREGABALIN
     Indication: Necrosis
  34. NAUZELIN [Concomitant]
     Active Substance: DOMPERIDONE
     Indication: Nausea
     Dosage: 30 MG, QD
     Dates: start: 20170614, end: 20170628
  35. NAUZELIN [Concomitant]
     Active Substance: DOMPERIDONE
     Indication: Chronic gastritis
  36. SENNOSIDES A AND B [Concomitant]
     Active Substance: SENNOSIDES A AND B
     Indication: Constipation
     Route: 048
     Dates: start: 20190902, end: 20200209
  37. LINZESS [Concomitant]
     Active Substance: LINACLOTIDE
     Indication: Constipation
     Dates: start: 20200210

REACTIONS (14)
  - Pain [Not Recovered/Not Resolved]
  - Skin ulcer [Recovered/Resolved with Sequelae]
  - Leg amputation [Unknown]
  - Finger amputation [Recovered/Resolved with Sequelae]
  - Hypokalaemia [Recovered/Resolved]
  - Femoral neck fracture [Recovered/Resolved]
  - Cellulitis [Recovered/Resolved]
  - Gastrooesophageal reflux disease [Recovering/Resolving]
  - Drug ineffective for unapproved indication [Recovered/Resolved with Sequelae]
  - Wound [Recovered/Resolved]
  - Dizziness [Recovered/Resolved]
  - Iron deficiency anaemia [Recovering/Resolving]
  - Skin ulcer [Not Recovered/Not Resolved]
  - Chronic gastritis [Recovered/Resolved]

NARRATIVE: CASE EVENT DATE: 20170517
